FAERS Safety Report 20554182 (Version 1)
Quarter: 2022Q1

REPORT INFORMATION
  Report Type: Other
  Country: US (occurrence: None)
  Receive Date: 20220304
  Receipt Date: 20220304
  Transmission Date: 20220423
  Serious: Yes (Other)
  Sender: FDA-Public Use
  Company Number: US-Merck Healthcare KGaA-9302424

PATIENT
  Age: 51 Year
  Sex: Female
  Weight: 92 kg

DRUGS (3)
  1. METFORMIN HYDROCHLORIDE [Suspect]
     Active Substance: METFORMIN HYDROCHLORIDE
     Indication: Type 2 diabetes mellitus
     Route: 048
  2. VICTOZA [Suspect]
     Active Substance: LIRAGLUTIDE
     Indication: Type 2 diabetes mellitus
  3. SYNTHROID [Concomitant]
     Active Substance: LEVOTHYROXINE SODIUM
     Indication: Blood thyroid stimulating hormone

REACTIONS (19)
  - Blood thyroid stimulating hormone increased [Recovered/Resolved]
  - Dry skin [Recovered/Resolved]
  - Fatigue [Recovered/Resolved]
  - Weight increased [Recovered/Resolved]
  - Temperature intolerance [Recovered/Resolved]
  - Feeling abnormal [Recovered/Resolved]
  - Somnolence [Recovered/Resolved]
  - Gastrointestinal motility disorder [Recovered/Resolved]
  - Peripheral swelling [Recovered/Resolved]
  - Hiatus hernia [Unknown]
  - Condition aggravated [Unknown]
  - Weight decreased [Unknown]
  - Gastritis [Unknown]
  - Vomiting projectile [Unknown]
  - Frequent bowel movements [Unknown]
  - Urticaria [Unknown]
  - Impaired gastric emptying [Unknown]
  - Malabsorption [Unknown]
  - Gastrointestinal bacterial overgrowth [Unknown]
